FAERS Safety Report 6704293-7 (Version None)
Quarter: 2010Q2

REPORT INFORMATION
  Report Type: 
  Country: None (occurrence: None)
  Receive Date: 20100430
  Receipt Date: 20100420
  Transmission Date: 20101027
  Serious: Yes (Other)
  Sender: FDA-Public Use
  Company Number: AE-ROCHE-700307

PATIENT
  Age: 54 Year
  Sex: Male
  Weight: 80 kg

DRUGS (5)
  1. XELODA [Suspect]
     Dosage: DAY 1 TO DAY 14
     Route: 048
  2. AVASTIN [Suspect]
     Route: 042
  3. OXALIPLATINE [Suspect]
     Route: 042
  4. ONDANSETRON [Concomitant]
     Indication: ANTIEMETIC SUPPORTIVE CARE
     Dosage: FREQUENCY: 5 DAYS
     Route: 048
  5. PANTOPRAZOLE [Concomitant]
     Indication: PROPHYLAXIS
     Dosage: FREQUENCY: 5 DAYS
     Route: 048

REACTIONS (1)
  - INTESTINAL OBSTRUCTION [None]
